FAERS Safety Report 24915629 (Version 1)
Quarter: 2025Q1

REPORT INFORMATION
  Report Type: Report from Study
  Country: US (occurrence: US)
  Receive Date: 20250203
  Receipt Date: 20250203
  Transmission Date: 20250408
  Serious: Yes (Hospitalization)
  Sender: ROCHE
  Company Number: US-ROCHE-10000190856

PATIENT
  Age: 20 Year
  Sex: Female
  Weight: 62.28 kg

DRUGS (67)
  1. KLONOPIN [Suspect]
     Active Substance: CLONAZEPAM
     Indication: Mast cell activation syndrome
     Route: 065
     Dates: end: 20240415
  2. XOLAIR [Suspect]
     Active Substance: OMALIZUMAB
     Indication: Mast cell activation syndrome
     Route: 058
  3. XOLAIR [Suspect]
     Active Substance: OMALIZUMAB
     Indication: Asthma
  4. QUETIAPINE FUMARATE [Concomitant]
     Active Substance: QUETIAPINE FUMARATE
     Dates: start: 20250102, end: 20250117
  5. QUETIAPINE FUMARATE [Concomitant]
     Active Substance: QUETIAPINE FUMARATE
     Dates: start: 20240306, end: 20240322
  6. QUETIAPINE FUMARATE [Concomitant]
     Active Substance: QUETIAPINE FUMARATE
     Dates: start: 20240321, end: 20241007
  7. QUETIAPINE FUMARATE [Concomitant]
     Active Substance: QUETIAPINE FUMARATE
     Route: 048
     Dates: start: 20250103
  8. DULOXETINE HYDROCHLORIDE [Concomitant]
     Active Substance: DULOXETINE HYDROCHLORIDE
     Dates: start: 20230316, end: 20230316
  9. DULOXETINE HYDROCHLORIDE [Concomitant]
     Active Substance: DULOXETINE HYDROCHLORIDE
     Dates: start: 20230313, end: 20230327
  10. ARIPIPRAZOLE [Concomitant]
     Active Substance: ARIPIPRAZOLE
     Dates: end: 20230412
  11. TRAZODONE HCL [Concomitant]
     Active Substance: TRAZODONE HYDROCHLORIDE
     Dates: end: 20240415
  12. VENLAFAXINE HCL [Concomitant]
     Active Substance: VENLAFAXINE HYDROCHLORIDE
     Dates: end: 20230706
  13. HYDROXYZINE PAMOATE [Concomitant]
     Active Substance: HYDROXYZINE PAMOATE
     Dates: end: 20220908
  14. MELATONIN [Concomitant]
     Active Substance: MELATONIN
     Dates: end: 20240415
  15. WELLBUTRIN XL [Concomitant]
     Active Substance: BUPROPION HYDROCHLORIDE
     Dates: start: 20220516, end: 20220516
  16. WELLBUTRIN XL [Concomitant]
     Active Substance: BUPROPION HYDROCHLORIDE
     Dates: start: 20220516, end: 20230116
  17. BUPROPION HYDROCHLORIDE [Concomitant]
     Active Substance: BUPROPION HYDROCHLORIDE
     Dates: end: 20230101
  18. NAPROXEN [Concomitant]
     Active Substance: NAPROXEN
     Dates: start: 20221128, end: 20231102
  19. ACETAMINOPHEN [Concomitant]
     Active Substance: ACETAMINOPHEN
     Dates: start: 20220707, end: 20221018
  20. ACETAMINOPHEN [Concomitant]
     Active Substance: ACETAMINOPHEN
     Dates: start: 20230427, end: 20240415
  21. ONDANSETRON [Concomitant]
     Active Substance: ONDANSETRON
     Dates: start: 20240107, end: 20250117
  22. OMEPRAZOLE [Concomitant]
     Active Substance: OMEPRAZOLE
     Dates: end: 20230302
  23. OMEPRAZOLE [Concomitant]
     Active Substance: OMEPRAZOLE
     Dates: end: 20230316
  24. EFFEXOR [Concomitant]
     Active Substance: VENLAFAXINE HYDROCHLORIDE
     Dates: end: 20230327
  25. PREDNISONE [Concomitant]
     Active Substance: PREDNISONE
     Dates: start: 20230418, end: 20230706
  26. PREDNISONE [Concomitant]
     Active Substance: PREDNISONE
     Route: 048
     Dates: start: 20241215, end: 20250117
  27. PREDNISONE [Concomitant]
     Active Substance: PREDNISONE
     Dates: start: 20241221, end: 20250103
  28. PREDNISONE [Concomitant]
     Active Substance: PREDNISONE
     Dates: start: 20241208, end: 20250101
  29. PREDNISONE [Concomitant]
     Active Substance: PREDNISONE
     Dates: start: 20250103, end: 20250103
  30. LINZESS [Concomitant]
     Active Substance: LINACLOTIDE
     Dates: end: 20240108
  31. NITROFURANTOIN MONOHYDRATE MACROCRYSTALS [Concomitant]
     Active Substance: NITROFURANTOIN\NITROFURANTOIN MONOHYDRATE
     Dates: end: 20240108
  32. LEVOFLOXACIN [Concomitant]
     Active Substance: LEVOFLOXACIN
     Dates: start: 20230827, end: 20240108
  33. DOXYCYCLINE HYCLATE [Concomitant]
     Active Substance: DOXYCYCLINE HYCLATE
     Dates: start: 20250102, end: 20250117
  34. DOXYCYCLINE [Concomitant]
     Active Substance: DOXYCYCLINE
     Dates: start: 20250103, end: 20250117
  35. DOXYCYCLINE [Concomitant]
     Active Substance: DOXYCYCLINE
     Dates: start: 20250104
  36. SULFAMETHOXAZOLE\TRIMETHOPRIM [Concomitant]
     Active Substance: SULFAMETHOXAZOLE\TRIMETHOPRIM
     Dates: end: 20240415
  37. VRAYLAR [Concomitant]
     Active Substance: CARIPRAZINE
     Dates: end: 20241007
  38. VRAYLAR [Concomitant]
     Active Substance: CARIPRAZINE
     Dates: end: 20250117
  39. LURASIDONE [Concomitant]
     Active Substance: LURASIDONE
     Dates: start: 20241220
  40. LURASIDONE [Concomitant]
     Active Substance: LURASIDONE
     Dates: end: 20241213
  41. CIMETIDINE [Concomitant]
     Active Substance: CIMETIDINE
     Dates: start: 20230209, end: 20230302
  42. METHYLPREDNISOLONE [Concomitant]
     Active Substance: METHYLPREDNISOLONE
     Route: 048
     Dates: end: 20250128
  43. METHYLPREDNISOLONE [Concomitant]
     Active Substance: METHYLPREDNISOLONE
  44. METHYLPREDNISOLONE [Concomitant]
     Active Substance: METHYLPREDNISOLONE
     Route: 048
  45. MONTELUKAST SODIUM [Concomitant]
     Active Substance: MONTELUKAST SODIUM
     Dates: start: 20241213
  46. LORATADINE [Concomitant]
     Active Substance: LORATADINE
     Dates: start: 20241220
  47. EPINEPHRINE [Concomitant]
     Active Substance: EPINEPHRINE
     Dates: start: 20241202
  48. METOPROLOL [Concomitant]
     Active Substance: METOPROLOL
     Dates: end: 20240122
  49. VERAPAMIL HCL [Concomitant]
     Active Substance: VERAPAMIL HYDROCHLORIDE
     Route: 048
     Dates: start: 20250103
  50. DILTIAZEM HYDROCHLORIDE [Concomitant]
     Active Substance: DILTIAZEM HYDROCHLORIDE
     Route: 048
     Dates: start: 20250104, end: 20250106
  51. GABAPENTIN [Concomitant]
     Active Substance: GABAPENTIN
     Dates: end: 20250117
  52. METOPROLOL TARTRATE [Concomitant]
     Active Substance: METOPROLOL TARTRATE
     Dates: start: 20240121, end: 20250103
  53. BACLOFEN [Concomitant]
     Active Substance: BACLOFEN
     Dates: start: 20240404, end: 20241007
  54. METHYLPHENIDATE HYDROCHLORIDE [Concomitant]
     Active Substance: METHYLPHENIDATE HYDROCHLORIDE
     Dates: start: 20240929, end: 20241017
  55. METHYLPHENIDATE HYDROCHLORIDE [Concomitant]
     Active Substance: METHYLPHENIDATE HYDROCHLORIDE
     Dates: start: 20241219, end: 20250103
  56. NICOTINE POLACRILEX [Concomitant]
     Active Substance: NICOTINE
  57. CROMOLYN SODIUM [Concomitant]
     Active Substance: CROMOLYN SODIUM
     Dates: start: 20241209
  58. WIXELA INHUB [Concomitant]
     Active Substance: FLUTICASONE PROPIONATE\SALMETEROL XINAFOATE
     Dates: start: 20250103
  59. SPIRIVA RESPIMAT [Concomitant]
     Active Substance: TIOTROPIUM BROMIDE
     Dates: start: 20250102, end: 20250112
  60. ALBUTEROL\IPRATROPIUM [Concomitant]
     Active Substance: ALBUTEROL\IPRATROPIUM
     Dates: start: 20240131
  61. CLONAZEPAM [Concomitant]
     Active Substance: CLONAZEPAM
     Dates: start: 20250102
  62. CLONAZEPAM [Concomitant]
     Active Substance: CLONAZEPAM
     Route: 048
     Dates: start: 20250103
  63. amphetamine detroaxmphet er [Concomitant]
     Dates: start: 20220818, end: 20230101
  64. KENALOG [Concomitant]
     Active Substance: TRIAMCINOLONE ACETONIDE
     Route: 030
  65. CLARITIN [Concomitant]
     Active Substance: LORATADINE
  66. ZANTAC [Concomitant]
     Active Substance: RANITIDINE HYDROCHLORIDE
  67. BENADRYL [Concomitant]
     Active Substance: DIPHENHYDRAMINE HYDROCHLORIDE

REACTIONS (6)
  - Anaphylactic reaction [Unknown]
  - Pain [Unknown]
  - Nausea [Unknown]
  - Abdominal pain [Unknown]
  - Pneumonia [Unknown]
  - Urinary tract infection [Unknown]
